FAERS Safety Report 12753975 (Version 1)
Quarter: 2016Q3

REPORT INFORMATION
  Report Type: Other
  Country: NP (occurrence: NP)
  Receive Date: 20160916
  Receipt Date: 20160916
  Transmission Date: 20161109
  Serious: Yes (Hospitalization)
  Sender: FDA-Public Use
  Company Number: NP-LUPIN PHARMACEUTICALS INC.-2016-04185

PATIENT
  Age: 23 Year
  Sex: Female

DRUGS (1)
  1. AMLODIPINE [Suspect]
     Active Substance: AMLODIPINE BESYLATE
     Indication: PRODUCT USED FOR UNKNOWN INDICATION
     Route: 048

REACTIONS (11)
  - Respiratory alkalosis [Recovered/Resolved]
  - Sinus tachycardia [Recovered/Resolved]
  - Overdose [Unknown]
  - Vomiting [Recovered/Resolved]
  - Hypoxia [Recovered/Resolved]
  - Dizziness [Recovered/Resolved]
  - Suicide attempt [Unknown]
  - Swelling face [Recovered/Resolved]
  - Hypotension [Recovered/Resolved]
  - Electrocardiogram ST segment depression [Recovered/Resolved]
  - Non-cardiogenic pulmonary oedema [Recovered/Resolved]
